FAERS Safety Report 4305305-0 (Version None)
Quarter: 2004Q1

REPORT INFORMATION
  Report Type: 
  Country: None (occurrence: None)
  Receive Date: 20040226
  Receipt Date: 20030403
  Transmission Date: 20041129
  Serious: Yes (Other)
  Sender: FDA-Public Use
  Company Number: US-BRISTOL-MYERS SQUIBB COMPANY-12229993

PATIENT
  Sex: Male

DRUGS (1)
  1. TAXOL [Suspect]
     Route: 042
     Dates: start: 20030401, end: 20030401

REACTIONS (2)
  - BRONCHOSPASM [None]
  - SKIN DISCOLOURATION [None]
